APPROVED DRUG PRODUCT: MEMANTINE HYDROCHLORIDE
Active Ingredient: MEMANTINE HYDROCHLORIDE
Strength: 2MG/ML
Dosage Form/Route: SOLUTION;ORAL
Application: A210319 | Product #001 | TE Code: AA
Applicant: SETON PHARMACEUTICALS LLC
Approved: Aug 31, 2020 | RLD: No | RS: No | Type: RX